FAERS Safety Report 6471559-8 (Version None)
Quarter: 2009Q4

REPORT INFORMATION
  Report Type: 
  Country: None (occurrence: None)
  Receive Date: 20091203
  Receipt Date: 20091126
  Transmission Date: 20100525
  Serious: Yes (Other)
  Sender: FDA-Public Use
  Company Number: GB-NAPPMUNDI-GBR_2008_0004409

PATIENT
  Sex: Male

DRUGS (13)
  1. OXYCONTIN [Interacting]
     Indication: OSTEOARTHRITIS
     Dosage: 80 MG, BID
     Route: 048
     Dates: start: 20061016
  2. OXYCONTIN [Interacting]
     Indication: SARCOIDOSIS
  3. OXYCONTIN [Interacting]
     Indication: ARTHRALGIA
  4. OXYCONTIN [Interacting]
     Indication: GOUT
  5. OXYNORM [Interacting]
     Indication: PAIN
     Dosage: 5 UNK, UNK
     Route: 065
     Dates: start: 20061201
  6. DHC CONTINUS [Suspect]
     Indication: DRUG USE FOR UNKNOWN INDICATION
     Route: 065
  7. FLUOXETINE [Interacting]
     Indication: DEPRESSION
     Dosage: 40 MG, DAILY
     Route: 048
     Dates: start: 20050210, end: 20080903
  8. OMEPRAZOLE [Concomitant]
     Dosage: 20 MG, UNK
     Route: 065
  9. PREDNISOLONE [Concomitant]
     Indication: SARCOIDOSIS
     Dosage: 10 MG, DAILY
     Route: 048
  10. ETORICOXIB [Concomitant]
     Indication: ARTHRALGIA
     Dosage: 60 MG, DAILY
     Route: 065
     Dates: start: 20051209
  11. ISPAGHULA [Concomitant]
     Route: 065
  12. CALCICHEW [Concomitant]
     Route: 065
  13. IBANDRONIC ACID [Concomitant]
     Indication: OSTEOPOROSIS PROPHYLAXIS
     Dosage: 150 MG, MONTHLY
     Route: 048
     Dates: start: 20060927

REACTIONS (6)
  - CONSTIPATION [None]
  - DRUG DEPENDENCE [None]
  - DRUG INEFFECTIVE [None]
  - DRUG INTERACTION [None]
  - HYPERHIDROSIS [None]
  - URINARY RETENTION [None]
